FAERS Safety Report 12743861 (Version 1)
Quarter: 2016Q3

REPORT INFORMATION
  Report Type: Spontaneous
  Country: JP (occurrence: JP)
  Receive Date: 20160914
  Receipt Date: 20160914
  Transmission Date: 20161109
  Serious: Yes (Other)
  Sender: FDA-Public Use
  Company Number: PHJP2016JP025905

PATIENT
  Age: 66 Year
  Sex: Female

DRUGS (2)
  1. EVEROLIMUS [Suspect]
     Active Substance: EVEROLIMUS
     Indication: RENAL CANCER
     Dosage: 10 MG, QD
     Route: 048
     Dates: start: 201309, end: 201406
  2. EVEROLIMUS [Suspect]
     Active Substance: EVEROLIMUS
     Indication: METASTASES TO LUNG
     Dosage: 5 MG, UNK
     Route: 048
     Dates: end: 201408

REACTIONS (7)
  - Metastases to central nervous system [Unknown]
  - Interstitial lung disease [Unknown]
  - Cerebral haemorrhage [Unknown]
  - Pneumonia [Unknown]
  - Sensory disturbance [Unknown]
  - Movement disorder [Unknown]
  - Metastases to lung [Unknown]

NARRATIVE: CASE EVENT DATE: 201406
